FAERS Safety Report 4970928-2 (Version None)
Quarter: 2006Q2

REPORT INFORMATION
  Report Type: 
  Country: None (occurrence: None)
  Receive Date: 20060412
  Receipt Date: 20051211
  Transmission Date: 20061013
  Serious: Yes (Hospitalization)
  Sender: FDA-Public Use
  Company Number: US-AVENTIS-200520392US

PATIENT
  Sex: Male
  Weight: 72.72 kg

DRUGS (1)
  1. LOVENOX [Suspect]
     Indication: SURGERY
     Dosage: DOSE: UNK
     Dates: start: 20050825, end: 20050902

REACTIONS (2)
  - PYREXIA [None]
  - WOUND INFECTION [None]
